FAERS Safety Report 17906757 (Version 2)
Quarter: 2020Q3

REPORT INFORMATION
  Report Type: Spontaneous
  Country: DE (occurrence: DE)
  Receive Date: 20200617
  Receipt Date: 20200922
  Transmission Date: 20201103
  Serious: Yes (Hospitalization)
  Sender: FDA-Public Use
  Company Number: DE-PFIZER INC-2020234223

PATIENT
  Age: 55 Year
  Sex: Male

DRUGS (8)
  1. VARGATEF [Suspect]
     Active Substance: NINTEDANIB
     Dosage: UNK
     Route: 065
  2. DEXAMETHASON [DEXAMETHASONE] [Suspect]
     Active Substance: DEXAMETHASONE
     Dosage: 2 MILLIGRAM, BID
  3. FENTANYL. [Concomitant]
     Active Substance: FENTANYL
     Dosage: 25 MICROGRAM, Q1HR
  4. MOXIFLOXACIN. [Concomitant]
     Active Substance: MOXIFLOXACIN
     Dosage: 400 MILLIGRAM, QD
     Dates: start: 20200102
  5. METAMIZOL [METAMIZOLE MAGNESIUM] [Concomitant]
     Active Substance: METAMIZOLE MAGNESIUM
     Dosage: 500 MILLIGRAM, QID
  6. MOVICOL [Concomitant]
     Active Substance: POLYETHYLENE GLYCOL 3350\POTASSIUM CHLORIDE\SODIUM BICARBONATE\SODIUM CHLORIDE
     Dosage: UNK UNK, QD
  7. PANTOPRAZOLE [Suspect]
     Active Substance: PANTOPRAZOLE
     Dosage: 40 MILLIGRAM, QD
  8. DOCETAXEL. [Suspect]
     Active Substance: DOCETAXEL
     Dosage: 60 MILLIGRAM
     Route: 042

REACTIONS (2)
  - Fracture [Recovering/Resolving]
  - Musculoskeletal pain [Recovering/Resolving]
